FAERS Safety Report 14766376 (Version 1)
Quarter: 2018Q2

REPORT INFORMATION
  Report Type: Spontaneous
  Country: US (occurrence: US)
  Receive Date: 20180416
  Receipt Date: 20180416
  Transmission Date: 20180711
  Serious: No
  Sender: FDA-Public Use
  Company Number: US-AMGEN-USASP2018031421

PATIENT
  Sex: Male

DRUGS (3)
  1. CORLANOR [Suspect]
     Active Substance: IVABRADINE HYDROCHLORIDE
     Indication: PRODUCT USED FOR UNKNOWN INDICATION
     Dosage: UNK
     Route: 065
     Dates: start: 201601
  2. CORLANOR [Suspect]
     Active Substance: IVABRADINE HYDROCHLORIDE
     Dosage: UNK
     Route: 065
     Dates: start: 20180304
  3. PREDNISONE. [Suspect]
     Active Substance: PREDNISONE
     Indication: EMPHYSEMA
     Dosage: 10 MG, QD
     Route: 065

REACTIONS (5)
  - Tremor [Recovering/Resolving]
  - Therapeutic response unexpected [Unknown]
  - Therapeutic response decreased [Unknown]
  - Dyspnoea [Unknown]
  - Heart rate increased [Recovering/Resolving]
